FAERS Safety Report 5067054-3 (Version None)
Quarter: 2006Q3

REPORT INFORMATION
  Report Type: 
  Country: None (occurrence: None)
  Receive Date: 20060801
  Receipt Date: 20060317
  Transmission Date: 20061208
  Serious: Yes (Hospitalization)
  Sender: FDA-Public Use
  Company Number: US-BAYER-200611179BCC

PATIENT
  Age: 74 Year
  Sex: Male
  Weight: 95 kg

DRUGS (13)
  1. ALEVE [Suspect]
     Indication: BACK PAIN
     Dosage: TOTAL DAILY DOSE: 220 MG  UNIT DOSE: 220 MG
     Route: 048
     Dates: start: 20060308, end: 20060308
  2. LASIX [Suspect]
  3. LEVAQUIN [Suspect]
  4. ADALAT CC [Concomitant]
     Dosage: TOTAL DAILY DOSE: 90 MG  UNIT DOSE: 90 MG
     Route: 048
  5. ZETIA [Concomitant]
     Dosage: TOTAL DAILY DOSE: 10 MG  UNIT DOSE: 10 MG
     Route: 048
  6. METOPROLOL TARTRATE [Concomitant]
     Dosage: TOTAL DAILY DOSE: 75 MG  UNIT DOSE: 50 MG
     Route: 048
  7. PRAVACHOL [Concomitant]
     Dosage: TOTAL DAILY DOSE: 40 MG  UNIT DOSE: 40 MG
     Route: 048
  8. PAXIL [Concomitant]
     Dosage: TOTAL DAILY DOSE: 20 MG  UNIT DOSE: 20 MG
     Route: 048
  9. PRILOSEC [Concomitant]
     Dosage: TOTAL DAILY DOSE: 20 MG  UNIT DOSE: 20 MG
     Route: 048
  10. XALATAN [Concomitant]
     Route: 047
  11. NITROGLYCERIN [Concomitant]
     Route: 048
  12. COUMADIN [Concomitant]
     Route: 048
     Dates: end: 20051101
  13. PROPOXYPHENE HYDROCHLORIDE [Concomitant]

REACTIONS (25)
  - ANAPHYLACTIC REACTION [None]
  - ANAPHYLACTIC SHOCK [None]
  - APHASIA [None]
  - ASTHENIA [None]
  - CONFUSIONAL STATE [None]
  - DEHYDRATION [None]
  - DIZZINESS [None]
  - DYSARTHRIA [None]
  - DYSPNOEA [None]
  - DYSURIA [None]
  - ELECTROCARDIOGRAM QT PROLONGED [None]
  - ERYTHEMA [None]
  - GAIT DISTURBANCE [None]
  - HEADACHE [None]
  - HYPERHIDROSIS [None]
  - HYPOAESTHESIA [None]
  - HYPOTENSION [None]
  - NECK PAIN [None]
  - OLIGURIA [None]
  - PRURITUS [None]
  - RASH [None]
  - RASH GENERALISED [None]
  - SWELLING [None]
  - SYNCOPE VASOVAGAL [None]
  - VISION BLURRED [None]
